FAERS Safety Report 6747437-3 (Version None)
Quarter: 2010Q2

REPORT INFORMATION
  Report Type: 
  Country: None (occurrence: None)
  Receive Date: 20100528
  Receipt Date: 20100523
  Transmission Date: 20101027
  Serious: Yes (Hospitalization)
  Sender: FDA-Public Use
  Company Number: TR-BAYER-201026231GPV

PATIENT
  Age: 23 Year
  Sex: Female
  Weight: 60 kg

DRUGS (1)
  1. BETAFERON [Suspect]
     Indication: MULTIPLE SCLEROSIS
     Route: 058
     Dates: start: 20100520, end: 20100520

REACTIONS (5)
  - GENERALISED ERYTHEMA [None]
  - HAEMORRHAGE [None]
  - PRURITUS [None]
  - PRURITUS GENERALISED [None]
  - SWELLING [None]
